FAERS Safety Report 8176695-6 (Version None)
Quarter: 2012Q1

REPORT INFORMATION
  Report Type: 
  Country: None (occurrence: None)
  Receive Date: 20120301
  Receipt Date: 20120223
  Transmission Date: 20120608
  Serious: Yes (Other)
  Sender: FDA-Public Use
  Company Number: US-UCBSA-052228

PATIENT
  Age: 55 Year
  Sex: Male
  Weight: 107 kg

DRUGS (25)
  1. TRAZODONE HCL [Concomitant]
     Indication: INSOMNIA
     Dosage: AT BEDTIME
     Route: 048
     Dates: start: 20110101
  2. NIACIN [Concomitant]
     Indication: BLOOD PRESSURE
     Route: 048
  3. FLONASE [Concomitant]
     Indication: HYPERSENSITIVITY
     Dosage: 1 SPRAY IN EACH NOSTRIL EVERY DAY
     Route: 045
  4. LISINOPRIL [Concomitant]
     Indication: HYPERTENSION
     Route: 048
  5. M.V.I. [Concomitant]
     Route: 048
  6. VITAMIN D [Concomitant]
     Route: 048
     Dates: start: 20120101
  7. FISH OIL [Concomitant]
     Indication: HEPATIC STEATOSIS
     Route: 048
     Dates: end: 20120221
  8. SIMVASTATIN [Concomitant]
     Indication: BLOOD CHOLESTEROL
     Route: 048
  9. VITAMIN B COMPLEX CAP [Concomitant]
     Route: 048
  10. OSTEO-BIO-FLEX [Concomitant]
     Indication: JOINT STABILISATION
     Route: 048
  11. VOLTAREN [Concomitant]
     Indication: RHEUMATOID ARTHRITIS
     Route: 048
  12. CALCIUM [Concomitant]
     Indication: MINERAL SUPPLEMENTATION
     Route: 048
  13. ZIANA [Concomitant]
     Indication: PROPHYLAXIS
     Route: 061
     Dates: start: 20111101
  14. CIMZIA [Suspect]
     Indication: RHEUMATOID ARTHRITIS
     Route: 058
     Dates: start: 20111223
  15. PREDNISONE TAB [Concomitant]
     Indication: RHEUMATOID ARTHRITIS
     Route: 048
  16. HYDROXYCHLOROQUINE SULFATE [Concomitant]
     Indication: RHEUMATOID ARTHRITIS
     Route: 048
     Dates: start: 20111201
  17. ZYRTEC [Concomitant]
     Indication: HYPERSENSITIVITY
     Route: 048
  18. PROBIOTIC [Concomitant]
     Indication: DYSPEPSIA
     Route: 048
  19. VITAMIN E [Concomitant]
     Indication: HEPATIC STEATOSIS
     Route: 048
  20. TRAMADOL HCL [Concomitant]
     Indication: PAIN
     Route: 048
  21. MELOXICAM [Concomitant]
     Indication: RHEUMATOID ARTHRITIS
     Route: 048
     Dates: start: 20110101
  22. ASCORBIC ACID [Concomitant]
     Route: 048
  23. ALLERGY INJECTIONS [Concomitant]
     Indication: HYPERSENSITIVITY
     Dosage: 2 INJECTIONS
     Route: 030
  24. FISH OIL [Concomitant]
     Route: 048
     Dates: start: 20120222
  25. ASPIRIN [Concomitant]
     Indication: PROPHYLAXIS
     Route: 048

REACTIONS (3)
  - RHEUMATOID ARTHRITIS [None]
  - SKIN CANCER [None]
  - SINUSITIS [None]
